FAERS Safety Report 8299400-1 (Version None)
Quarter: 2012Q2

REPORT INFORMATION
  Report Type: 
  Country: None (occurrence: None)
  Receive Date: 20120419
  Receipt Date: 20120411
  Transmission Date: 20120825
  Serious: Yes (Other)
  Sender: FDA-Public Use
  Company Number: US-JNJFOC-20120405401

PATIENT
  Sex: Male
  Weight: 81.65 kg

DRUGS (1)
  1. REMICADE [Suspect]
     Indication: COLITIS ULCERATIVE
     Dosage: 5 VIALS
     Route: 042

REACTIONS (1)
  - NEPHROLITHIASIS [None]
